FAERS Safety Report 18692950 (Version 1)
Quarter: 2021Q1

REPORT INFORMATION
  Report Type: Other
  Country: ES (occurrence: ES)
  Receive Date: 20210104
  Receipt Date: 20210104
  Transmission Date: 20210419
  Serious: Yes (Death, Hospitalization, Other)
  Sender: FDA-Public Use
  Company Number: ES-INVENTIA-000062

PATIENT
  Age: 41 Year
  Sex: Male

DRUGS (3)
  1. TRAMADOL/PARACETAMOL [Suspect]
     Active Substance: ACETAMINOPHEN\TRAMADOL
     Indication: PRODUCT USED FOR UNKNOWN INDICATION
     Dosage: 37.5 MG/325 MG SPORADICALLY FOR 1ST 3 YRS, BUT SINCE 2 YRS BETWEEN 6?12 TABLETS/DAY
  2. VENLAFAXINE HYDROCHLORIDE. [Suspect]
     Active Substance: VENLAFAXINE HYDROCHLORIDE
     Indication: ADJUSTMENT DISORDER WITH DEPRESSED MOOD
     Dosage: 150 MG PER DAY
  3. DIAZEPAM. [Suspect]
     Active Substance: DIAZEPAM
     Indication: PRODUCT USED FOR UNKNOWN INDICATION
     Dosage: OCCASIONALLY TOOK DIAZEPAM 2 MG AT NIGHT

REACTIONS (10)
  - Coma [Unknown]
  - Bradycardia [Not Recovered/Not Resolved]
  - Mouth haemorrhage [Unknown]
  - Mydriasis [Unknown]
  - Accidental death [Fatal]
  - Cardiac arrest [Fatal]
  - Craniocerebral injury [Fatal]
  - Upper limb fracture [Unknown]
  - Hypotension [Unknown]
  - Ear haemorrhage [Unknown]
